FAERS Safety Report 17201402 (Version 5)
Quarter: 2020Q1

REPORT INFORMATION
  Report Type: Spontaneous
  Country: US (occurrence: US)
  Receive Date: 20191226
  Receipt Date: 20200310
  Transmission Date: 20200409
  Serious: No
  Sender: FDA-Public Use
  Company Number: US-JNJFOC-20191224776

PATIENT
  Sex: Male
  Weight: 90.8 kg

DRUGS (4)
  1. DURAGESIC [Suspect]
     Active Substance: FENTANYL
     Indication: PAIN
     Route: 062
     Dates: start: 201812
  2. FENTANYL. [Suspect]
     Active Substance: FENTANYL
     Indication: PAIN
     Route: 062
  3. DURAGESIC [Suspect]
     Active Substance: FENTANYL
     Route: 062
     Dates: start: 2019
  4. DURAGESIC [Suspect]
     Active Substance: FENTANYL
     Route: 062
     Dates: start: 202001

REACTIONS (5)
  - Wrong technique in product usage process [Unknown]
  - Breakthrough pain [Unknown]
  - Product complaint [Unknown]
  - Therapeutic response decreased [Unknown]
  - Drug ineffective [Unknown]
